FAERS Safety Report 8849522 (Version 2)
Quarter: 2012Q4

REPORT INFORMATION
  Report Type: 
  Country: EG (occurrence: EG)
  Receive Date: 20121019
  Receipt Date: 20121115
  Transmission Date: 20130627
  Serious: Yes (Death)
  Sender: FDA-Public Use
  Company Number: EG-PFIZER INC-2012253437

PATIENT
  Age: 60 Year
  Sex: Female

DRUGS (1)
  1. TYGACIL [Suspect]
     Indication: ABDOMINAL ABSCESS
     Dosage: 50 mg, 2x/day
     Route: 042
     Dates: start: 20120929

REACTIONS (1)
  - Cardiac failure [Fatal]
